FAERS Safety Report 6421084-5 (Version None)
Quarter: 2009Q4

REPORT INFORMATION
  Report Type: 
  Country: None (occurrence: None)
  Receive Date: 20091028
  Receipt Date: 20091013
  Transmission Date: 20100525
  Serious: Yes (Other)
  Sender: FDA-Public Use
  Company Number: AVE_01037_2009

PATIENT
  Sex: Female

DRUGS (1)
  1. NICOTINE [Suspect]
     Indication: DRUG USE FOR UNKNOWN INDICATION
     Dosage: (DF TRANSDERMAL)
     Route: 062

REACTIONS (5)
  - ASTHENIA [None]
  - DIPLOPIA [None]
  - GAIT DISTURBANCE [None]
  - PRESYNCOPE [None]
  - TREMOR [None]
